FAERS Safety Report 6850435-2 (Version None)
Quarter: 2010Q3

REPORT INFORMATION
  Report Type: 
  Country: None (occurrence: None)
  Receive Date: 20100716
  Receipt Date: 20071016
  Transmission Date: 20110219
  Serious: Yes (Other)
  Sender: FDA-Public Use
  Company Number: US-PFIZER INC-2007087694

PATIENT
  Sex: Male
  Weight: 99.8 kg

DRUGS (8)
  1. CHANTIX [Suspect]
     Indication: EX-TOBACCO USER
     Dosage: EVERY DAY
     Dates: start: 20071001
  2. METFORMIN HCL [Concomitant]
  3. INSULIN GLARGINE [Concomitant]
  4. NOVOLOG [Concomitant]
  5. METOPROLOL [Concomitant]
  6. AVAPRO [Concomitant]
  7. VYTORIN [Concomitant]
  8. ACETYLSALICYLIC ACID [Concomitant]

REACTIONS (1)
  - HYPERGLYCAEMIA [None]
